FAERS Safety Report 9289550 (Version 1)
Quarter: 2013Q2

REPORT INFORMATION
  Report Type: Spontaneous
  Country: CA (occurrence: CA)
  Receive Date: 20130515
  Receipt Date: 20130515
  Transmission Date: 20140414
  Serious: Yes (Life-Threatening, Hospitalization, Disabling)
  Sender: FDA-Public Use
  Company Number: CA-B.I. PHARMACEUTICALS,INC./RIDGEFIELD-2013-CN-00838CN

PATIENT
  Age: 64 Year
  Sex: Male
  Weight: 100 kg

DRUGS (5)
  1. PRADAXA [Suspect]
     Dosage: 300 MG
  2. DIGOXIN [Concomitant]
  3. HCTZ [Concomitant]
  4. RAMIPRIL [Concomitant]
  5. VIAGRA [Concomitant]

REACTIONS (2)
  - Cerebral infarction [Recovered/Resolved with Sequelae]
  - Cerebrovascular accident [Recovered/Resolved with Sequelae]
